FAERS Safety Report 14516164 (Version 1)
Quarter: 2018Q1

REPORT INFORMATION
  Report Type: Spontaneous
  Country: US (occurrence: US)
  Receive Date: 20180211
  Receipt Date: 20180211
  Transmission Date: 20180509
  Serious: Yes (Other)
  Sender: FDA-Public Use
  Company Number: US-DRREDDYS-USA/USA/18/0096173

PATIENT
  Age: 73 Year
  Sex: Female
  Weight: 57.7 kg

DRUGS (1)
  1. SUMATRIPTAN SUCCINATE TABLETS [Suspect]
     Active Substance: SUMATRIPTAN SUCCINATE
     Indication: MIGRAINE
     Route: 065

REACTIONS (2)
  - Influenza like illness [Recovered/Resolved]
  - Blood urine present [Not Recovered/Not Resolved]
